FAERS Safety Report 22340415 (Version 2)
Quarter: 2024Q1

REPORT INFORMATION
  Report Type: Report from Study
  Country: US (occurrence: US)
  Receive Date: 20230518
  Receipt Date: 20240308
  Transmission Date: 20240410
  Serious: Yes (Other)
  Sender: FDA-Public Use
  Company Number: US-JAZZ-2022-US-037947

PATIENT
  Age: 60 Year
  Sex: Male

DRUGS (16)
  1. XYREM [Suspect]
     Active Substance: SODIUM OXYBATE
     Indication: Hypersomnia
     Dosage: 4.5 GRAM, BID
  2. XYREM [Suspect]
     Active Substance: SODIUM OXYBATE
     Indication: Narcolepsy
     Dosage: UNK
  3. XYREM [Suspect]
     Active Substance: SODIUM OXYBATE
     Indication: Cataplexy
     Dosage: UNK
  4. XYREM [Suspect]
     Active Substance: SODIUM OXYBATE
     Indication: Somnolence
  5. XYREM [Suspect]
     Active Substance: SODIUM OXYBATE
     Indication: Hypersomnia
  6. PROCARDIA [Concomitant]
     Active Substance: NIFEDIPINE
     Indication: Product used for unknown indication
     Dosage: UNK
     Dates: start: 20211122
  7. LISINOPRIL [Concomitant]
     Active Substance: LISINOPRIL
     Indication: Product used for unknown indication
     Dosage: UNK
     Dates: start: 20211122
  8. PANTOPRAZOLE SODIUM [Concomitant]
     Active Substance: PANTOPRAZOLE SODIUM
     Indication: Product used for unknown indication
     Dosage: UNK
     Dates: start: 20211214
  9. CARVEDILOL [Concomitant]
     Active Substance: CARVEDILOL
     Indication: Product used for unknown indication
     Dosage: UNK
     Dates: start: 20220103
  10. SERTRALINE HYDROCHLORIDE [Concomitant]
     Active Substance: SERTRALINE HYDROCHLORIDE
     Indication: Product used for unknown indication
     Dosage: UNK
     Dates: start: 20220301
  11. MENTHOL [Concomitant]
     Active Substance: MENTHOL
     Indication: Product used for unknown indication
     Dosage: UNK
     Dates: start: 20221214
  12. VAPOFLU [Concomitant]
     Indication: Product used for unknown indication
     Dosage: UNK
     Dates: start: 20221214
  13. ASPIRINE EC [Concomitant]
     Indication: Product used for unknown indication
  14. MODAFINIL [Concomitant]
     Active Substance: MODAFINIL
     Indication: Product used for unknown indication
  15. CRESTOR [Concomitant]
     Active Substance: ROSUVASTATIN CALCIUM
     Indication: Product used for unknown indication
  16. FLOMAX [Concomitant]
     Active Substance: TAMSULOSIN HYDROCHLORIDE
     Indication: Product used for unknown indication

REACTIONS (20)
  - Hallucination [Unknown]
  - Disability [Unknown]
  - Swelling [Unknown]
  - Weight decreased [Unknown]
  - Oropharyngeal pain [Unknown]
  - Illness [Recovered/Resolved]
  - Sinusitis [Unknown]
  - Feeling abnormal [Unknown]
  - Headache [Unknown]
  - Weight increased [Unknown]
  - Palpitations [Unknown]
  - Malaise [Unknown]
  - Hyperlipidaemia [Unknown]
  - Lumbar radiculopathy [Unknown]
  - Dyspnoea exertional [Unknown]
  - Dizziness [Unknown]
  - Abdominal distension [Unknown]
  - Product administration interrupted [Unknown]
  - Intentional dose omission [Unknown]
  - Intentional product use issue [Unknown]

NARRATIVE: CASE EVENT DATE: 20221214
